FAERS Safety Report 5488522-6 (Version None)
Quarter: 2007Q4

REPORT INFORMATION
  Report Type: 
  Country: None (occurrence: None)
  Receive Date: 20071017
  Receipt Date: 20071005
  Transmission Date: 20080405
  Serious: Yes (Other)
  Sender: FDA-Public Use
  Company Number: US-ELI_LILLY_AND_COMPANY-US200710001576

PATIENT
  Age: 21 Year
  Sex: Female

DRUGS (1)
  1. STRATTERA [Suspect]
     Indication: ATTENTION DEFICIT/HYPERACTIVITY DISORDER
     Dosage: 40 MG, UNK
     Dates: start: 20070927

REACTIONS (8)
  - DISTURBANCE IN ATTENTION [None]
  - DYSGRAPHIA [None]
  - DYSSTASIA [None]
  - HEADACHE [None]
  - IRRITABILITY [None]
  - MENTAL IMPAIRMENT [None]
  - NAUSEA [None]
  - SUICIDAL IDEATION [None]
